FAERS Safety Report 4612284-5 (Version None)
Quarter: 2005Q1

REPORT INFORMATION
  Report Type: 
  Country: None (occurrence: None)
  Receive Date: 20050316
  Receipt Date: 20050303
  Transmission Date: 20050727
  Serious: Yes (Hospitalization)
  Sender: FDA-Public Use
  Company Number: HQWYE851904MAR05

PATIENT
  Age: 55 Year
  Sex: Male

DRUGS (3)
  1. EFFEXOR XR [Suspect]
     Indication: DEPRESSION
     Dosage: 150 MG 2X PER 1 DAY, ORAL
     Route: 048
  2. TRAZODONE HCL [Suspect]
  3. DILTIAZEM [Concomitant]

REACTIONS (3)
  - DELIRIUM [None]
  - DRUG WITHDRAWAL SYNDROME [None]
  - HYPERNATRAEMIA [None]
